FAERS Safety Report 6177735-6 (Version None)
Quarter: 2009Q2

REPORT INFORMATION
  Report Type: 
  Country: None (occurrence: None)
  Receive Date: 20090501
  Receipt Date: 20090501
  Transmission Date: 20091009
  Serious: No
  Sender: FDA-Public Use
  Company Number: None

PATIENT
  Age: 7 Year
  Sex: Male

DRUGS (2)
  1. CYCLOGYL [Suspect]
     Indication: CYCLOPLEGIC REFRACTION
     Dosage: 1+1 DROPS BOTH EYES
     Dates: start: 20090204
  2. CYCLOGYL [Suspect]
     Indication: OPHTHALMOLOGICAL EXAMINATION
     Dosage: 1+1 DROPS BOTH EYES
     Dates: start: 20090204

REACTIONS (5)
  - AGITATION [None]
  - BALANCE DISORDER [None]
  - HALLUCINATION [None]
  - INCOHERENT [None]
  - INFLUENZA [None]
